FAERS Safety Report 5772175-3 (Version None)
Quarter: 2008Q2

REPORT INFORMATION
  Report Type: 
  Country: None (occurrence: None)
  Receive Date: 20080613
  Receipt Date: 20080605
  Transmission Date: 20081010
  Serious: Yes (Death, Other)
  Sender: FDA-Public Use
  Company Number: US-BAYER-200825102NA

PATIENT
  Sex: Male

DRUGS (1)
  1. MAGNEVIST [Suspect]
     Indication: DRUG USE FOR UNKNOWN INDICATION
     Dosage: TOTAL DAILY DOSE: 10 ML
     Dates: start: 20050107, end: 20050107

REACTIONS (10)
  - ANXIETY [None]
  - EMOTIONAL DISTRESS [None]
  - FIBROSIS [None]
  - GENERAL PHYSICAL HEALTH DETERIORATION [None]
  - INJURY [None]
  - MOBILITY DECREASED [None]
  - NEPHROGENIC SYSTEMIC FIBROSIS [None]
  - PAIN [None]
  - QUALITY OF LIFE DECREASED [None]
  - SCAR [None]
